FAERS Safety Report 4771696-X (Version None)
Quarter: 2005Q3

REPORT INFORMATION
  Report Type: 
  Country: None (occurrence: None)
  Receive Date: 20050914
  Receipt Date: 20050830
  Transmission Date: 20060218
  Serious: Yes (Hospitalization)
  Sender: FDA-Public Use
  Company Number: B0390099A

PATIENT
  Age: 26 Year
  Sex: Male

DRUGS (4)
  1. ZIDOVUDINE [Suspect]
     Indication: HIV INFECTION
  2. LAMIVUDINE [Suspect]
     Indication: HIV INFECTION
  3. INDINAVIR SULFATE [Concomitant]
  4. NELFINAVIR MESYLATE [Concomitant]

REACTIONS (7)
  - ABDOMINAL PAIN [None]
  - HEPATOMEGALY [None]
  - KUSSMAUL RESPIRATION [None]
  - LACTIC ACIDOSIS [None]
  - TACHYCARDIA [None]
  - TACHYPNOEA [None]
  - WEIGHT DECREASED [None]
